FAERS Safety Report 5742831-1 (Version None)
Quarter: 2008Q2

REPORT INFORMATION
  Report Type: 
  Country: None (occurrence: None)
  Receive Date: 20080515
  Receipt Date: 20080515
  Transmission Date: 20081010
  Serious: Yes (Hospitalization)
  Sender: FDA-Public Use
  Company Number: None

PATIENT
  Age: 81 Year
  Sex: Male

DRUGS (2)
  1. DIGOXIN TAB [Suspect]
     Indication: CARDIAC DISORDER
     Dates: start: 20071227, end: 20080509
  2. DIGOXIN TAB [Suspect]
     Dates: start: 20080319, end: 20080509

REACTIONS (3)
  - DYSPNOEA [None]
  - OEDEMA PERIPHERAL [None]
  - PHARMACEUTICAL PRODUCT COMPLAINT [None]
